FAERS Safety Report 24389230 (Version 2)
Quarter: 2024Q4

REPORT INFORMATION
  Report Type: Spontaneous
  Country: US (occurrence: US)
  Receive Date: 20241003
  Receipt Date: 20241003
  Transmission Date: 20250114
  Serious: Yes (Other)
  Sender: ROCHE
  Company Number: US-ROCHE-10000081128

PATIENT
  Age: 68 Year
  Sex: Male
  Weight: 84.82 kg

DRUGS (1)
  1. RITUXAN [Suspect]
     Active Substance: RITUXIMAB
     Indication: Rheumatoid arthritis
     Dosage: FOR EVERY 24 WEEKS. DATE OF TREATMENT ADDED (26/MAR/2024, 09/APR/2024, 17/APR/2024)
     Route: 065
     Dates: start: 2023

REACTIONS (14)
  - Memory impairment [Not Recovered/Not Resolved]
  - Fall [Unknown]
  - Confusional state [Recovering/Resolving]
  - Amnesia [Recovering/Resolving]
  - Gait disturbance [Recovering/Resolving]
  - Balance disorder [Recovering/Resolving]
  - Dizziness [Recovering/Resolving]
  - Vertigo [Recovering/Resolving]
  - Therapeutic response shortened [Not Recovered/Not Resolved]
  - Arthralgia [Not Recovered/Not Resolved]
  - Blood iron decreased [Unknown]
  - Neoplasm malignant [Unknown]
  - Cognitive disorder [Recovering/Resolving]
  - Mobility decreased [Recovering/Resolving]

NARRATIVE: CASE EVENT DATE: 20240728
